FAERS Safety Report 23321000 (Version 2)
Quarter: 2025Q3

REPORT INFORMATION
  Report Type: Spontaneous
  Country: US (occurrence: US)
  Receive Date: 20231220
  Receipt Date: 20250709
  Transmission Date: 20251021
  Serious: No
  Sender: SCYNEXIS, INC.
  Company Number: US-GLAXOSMITHKLINE-US2023AMR151373

PATIENT

DRUGS (2)
  1. BREXAFEMME [Suspect]
     Active Substance: IBREXAFUNGERP CITRATE
     Indication: Gastrointestinal fungal infection
     Route: 065
  2. BREXAFEMME [Suspect]
     Active Substance: IBREXAFUNGERP CITRATE
     Indication: Vaginal infection

REACTIONS (2)
  - Off label use [Unknown]
  - Product prescribing error [Unknown]
